FAERS Safety Report 19093922 (Version 1)
Quarter: 2021Q2

REPORT INFORMATION
  Report Type: Spontaneous
  Country: CA (occurrence: CA)
  Receive Date: 20210405
  Receipt Date: 20210405
  Transmission Date: 20210717
  Serious: Yes (Other)
  Sender: FDA-Public Use
  Company Number: CA-TEVA-2021-CA-1896526

PATIENT
  Age: 58 Year
  Sex: Male

DRUGS (7)
  1. DALTEPARIN [Concomitant]
     Active Substance: DALTEPARIN
     Route: 065
  2. ONDANSETRON [Concomitant]
     Active Substance: ONDANSETRON
     Route: 065
  3. RABEPRAZOLE [Concomitant]
     Active Substance: RABEPRAZOLE
     Route: 065
  4. METFORMIN [Concomitant]
     Active Substance: METFORMIN HYDROCHLORIDE
     Route: 065
  5. PROCHLORPERAZINE. [Concomitant]
     Active Substance: PROCHLORPERAZINE
     Route: 065
  6. OXALIPLATIN. [Suspect]
     Active Substance: OXALIPLATIN
     Route: 065
  7. DEXAMETHASONE. [Concomitant]
     Active Substance: DEXAMETHASONE
     Route: 065

REACTIONS (5)
  - Blood pressure increased [Recovered/Resolved]
  - Paraesthesia [Recovered/Resolved]
  - Pruritus [Recovered/Resolved]
  - Erythema [Recovered/Resolved]
  - Abdominal discomfort [Recovered/Resolved]
